FAERS Safety Report 6143040-7 (Version None)
Quarter: 2009Q2

REPORT INFORMATION
  Report Type: 
  Country: None (occurrence: None)
  Receive Date: 20090403
  Receipt Date: 20070315
  Transmission Date: 20091009
  Serious: Yes (Hospitalization)
  Sender: FDA-Public Use
  Company Number: US-ASTRAZENECA-2006UW22191

PATIENT
  Age: 12990 Day
  Sex: Female
  Weight: 122.5 kg

DRUGS (21)
  1. SEROQUEL [Suspect]
     Indication: INSOMNIA
     Dosage: 25MG -200 MG
     Route: 048
     Dates: start: 19990716
  2. CLOZARIL [Concomitant]
     Dates: start: 19880101, end: 19890101
  3. HALDOL [Concomitant]
     Dates: start: 19880101, end: 19890101
  4. GLYBURIDE AND METFORMIN [Concomitant]
  5. NOVOLIN R [Concomitant]
  6. PIROXICAM [Concomitant]
  7. ASPIRIN [Concomitant]
  8. SERTRALINE HCL [Concomitant]
  9. GABAPENTIN [Concomitant]
  10. BUPROPION HCL [Concomitant]
  11. CLONAZEPAM [Concomitant]
  12. ALBUTEROL [Concomitant]
  13. FLUOXETINE [Concomitant]
  14. OXYCODONE HCL [Concomitant]
  15. TRAMADOL HCL [Concomitant]
  16. ZOLPIDEM [Concomitant]
  17. LORAZEPAM [Concomitant]
  18. ACETAMINOPHEN [Concomitant]
  19. MORPHINE [Concomitant]
  20. GLIPIZIDE [Concomitant]
  21. LISINOPRIL [Concomitant]

REACTIONS (16)
  - ACUTE SINUSITIS [None]
  - AFFECTIVE DISORDER [None]
  - ALVEOLAR OSTEITIS [None]
  - ARTHRALGIA [None]
  - BACK PAIN [None]
  - DEPRESSED MOOD [None]
  - DIABETES MELLITUS [None]
  - DYSPNOEA [None]
  - HEADACHE [None]
  - MIGRAINE [None]
  - OBESITY [None]
  - PANIC ATTACK [None]
  - PERSONALITY DISORDER [None]
  - POLYSUBSTANCE DEPENDENCE [None]
  - POST-TRAUMATIC STRESS DISORDER [None]
  - SINUS CONGESTION [None]
